FAERS Safety Report 9353970 (Version 1)
Quarter: 2013Q2

REPORT INFORMATION
  Report Type: Spontaneous
  Country: US (occurrence: US)
  Receive Date: 20130618
  Receipt Date: 20130618
  Transmission Date: 20140414
  Serious: No
  Sender: FDA-Public Use
  Company Number: US-009507513-1306USA006561

PATIENT
  Age: 27 Year
  Sex: Male

DRUGS (2)
  1. SAPHRIS [Suspect]
     Dosage: 20 MG, AT NIGHT
     Route: 060
  2. LITHIUM [Concomitant]

REACTIONS (4)
  - Hallucination, auditory [Recovering/Resolving]
  - Tremor [Recovering/Resolving]
  - Polyuria [Recovering/Resolving]
  - Polydipsia [Recovering/Resolving]
